FAERS Safety Report 24653017 (Version 1)
Quarter: 2024Q4

REPORT INFORMATION
  Report Type: Spontaneous
  Country: US (occurrence: None)
  Receive Date: 20241122
  Receipt Date: 20241122
  Transmission Date: 20250115
  Serious: Yes (Hospitalization)
  Sender: Public
  Company Number: None

PATIENT
  Age: 75 Year
  Sex: Male
  Weight: 95 kg

DRUGS (1)
  1. EMPAGLIFLOZIN [Suspect]
     Active Substance: EMPAGLIFLOZIN
     Indication: Diabetes mellitus
     Dosage: 1.00 MG DAILY ORL
     Route: 048

REACTIONS (3)
  - Urinary tract infection [None]
  - Presyncope [None]
  - Sepsis [None]

NARRATIVE: CASE EVENT DATE: 20240722
